FAERS Safety Report 9661516 (Version 2)
Quarter: 2013Q4

REPORT INFORMATION
  Report Type: Spontaneous
  Country: US (occurrence: US)
  Receive Date: 20131031
  Receipt Date: 20131031
  Transmission Date: 20140711
  Serious: No
  Sender: FDA-Public Use
  Company Number: US-PURDUE-USA-2010-0052729

PATIENT
  Sex: Male

DRUGS (2)
  1. OXYCONTIN (NDA 22-272) [Suspect]
     Indication: PAIN
     Dosage: 80 MG, BID
     Dates: start: 201010, end: 2010
  2. OXYCONTIN (NDA 22-272) [Suspect]
     Dosage: 30 MG, UNK
     Dates: end: 2010

REACTIONS (6)
  - Nausea [Unknown]
  - Diarrhoea [Unknown]
  - Headache [Unknown]
  - Drug effect decreased [Unknown]
  - Dizziness [Unknown]
  - Inadequate analgesia [Unknown]
